FAERS Safety Report 18495591 (Version 1)
Quarter: 2020Q4

REPORT INFORMATION
  Report Type: Spontaneous
  Country: US (occurrence: US)
  Receive Date: 20201112
  Receipt Date: 20201112
  Transmission Date: 20210114
  Serious: No
  Sender: FDA-Public Use
  Company Number: US-009507513-2011USA005294

PATIENT
  Sex: Female

DRUGS (1)
  1. GANIRELIX ACETATE INJECTION [Suspect]
     Active Substance: GANIRELIX ACETATE
     Indication: INFERTILITY FEMALE
     Dosage: 250 MICROGRAM DAILY AS DIRECTED, STRENGTH: 250MCG/0.5M, ROUTE: UNDER THE SKIN
     Dates: start: 20201002

REACTIONS (1)
  - Vulvovaginal pruritus [Unknown]

NARRATIVE: CASE EVENT DATE: 2020
